FAERS Safety Report 7085406-7 (Version None)
Quarter: 2010Q4

REPORT INFORMATION
  Report Type: 
  Country: None (occurrence: None)
  Receive Date: 20101105
  Receipt Date: 20101029
  Transmission Date: 20110411
  Serious: Yes (Other)
  Sender: FDA-Public Use
  Company Number: US-PFIZER INC-2010138345

PATIENT
  Sex: Female

DRUGS (1)
  1. XANAX [Suspect]
     Indication: ANXIETY
     Dosage: 1.5 MG, 4X/DAY
     Route: 048

REACTIONS (3)
  - HYPERTENSION [None]
  - PRODUCT TASTE ABNORMAL [None]
  - SELF INJURIOUS BEHAVIOUR [None]
